FAERS Safety Report 9735721 (Version 2)
Quarter: 2013Q4

REPORT INFORMATION
  Report Type: Report from Study
  Country: US (occurrence: US)
  Receive Date: 20131206
  Receipt Date: 20131230
  Transmission Date: 20140711
  Serious: Yes (Hospitalization)
  Sender: FDA-Public Use
  Company Number: US-ABBVIE-13P-163-1174687-00

PATIENT
  Sex: Male

DRUGS (2)
  1. HUMIRA [Suspect]
     Indication: PSORIATIC ARTHROPATHY
     Dosage: LAST INJECTION 29 AUG 2013
     Dates: start: 20130718
  2. HUMIRA [Suspect]
     Dosage: LAST INJECTION 22 NOV 2013
     Dates: start: 20131108

REACTIONS (2)
  - Malaise [Recovering/Resolving]
  - Infection [Unknown]
